FAERS Safety Report 23482095 (Version 2)
Quarter: 2024Q1

REPORT INFORMATION
  Report Type: Report from Study
  Country: US (occurrence: US)
  Receive Date: 20240205
  Receipt Date: 20240311
  Transmission Date: 20240409
  Serious: No
  Sender: FDA-Public Use
  Company Number: US-BIOVITRUM-2024-US-001657

PATIENT
  Age: 57 Year
  Sex: Female

DRUGS (1)
  1. KINERET [Suspect]
     Active Substance: ANAKINRA
     Indication: Rheumatoid arthritis
     Dosage: DAILY
     Route: 058
     Dates: start: 20240110

REACTIONS (6)
  - Headache [Unknown]
  - Hot flush [Unknown]
  - Fatigue [Unknown]
  - Pain [Unknown]
  - Blood glucose decreased [Unknown]
  - Stress [Unknown]
